FAERS Safety Report 18113250 (Version 1)
Quarter: 2020Q3

REPORT INFORMATION
  Report Type: Spontaneous
  Country: GB (occurrence: GB)
  Receive Date: 20200805
  Receipt Date: 20200805
  Transmission Date: 20201103
  Serious: Yes (Hospitalization, Other)
  Sender: FDA-Public Use
  Company Number: GB-SA-2020SA203314

PATIENT

DRUGS (7)
  1. RIFATER [Suspect]
     Active Substance: ISONIAZID\PYRAZINAMIDE\RIFAMPIN
     Indication: TUBERCULOSIS
     Dosage: 4 DF, QD
     Route: 048
     Dates: start: 20200516
  2. FOLIC ACID. [Concomitant]
     Active Substance: FOLIC ACID
  3. FERROUS FUMARATE [Concomitant]
     Active Substance: FERROUS FUMARATE
  4. SALBUTAMOL [Concomitant]
     Active Substance: ALBUTEROL
  5. RIFATER [Suspect]
     Active Substance: ISONIAZID\PYRAZINAMIDE\RIFAMPIN
     Dosage: 5 DF, QD
     Route: 048
  6. PYRIDOXINE [Concomitant]
     Active Substance: PYRIDOXINE
  7. ETHAMBUTOL HYDROCHLORIDE. [Concomitant]
     Active Substance: ETHAMBUTOL HYDROCHLORIDE

REACTIONS (2)
  - Acute kidney injury [Unknown]
  - Tubulointerstitial nephritis [Recovering/Resolving]

NARRATIVE: CASE EVENT DATE: 20200701
